FAERS Safety Report 14931528 (Version 3)
Quarter: 2018Q2

REPORT INFORMATION
  Report Type: Report from Study
  Country: FR (occurrence: FR)
  Receive Date: 20180524
  Receipt Date: 20180607
  Transmission Date: 20180711
  Serious: Yes (Death, Other)
  Sender: FDA-Public Use
  Company Number: FR-JAZZ-2017-FR-015321

PATIENT

DRUGS (3)
  1. ENBREL [Concomitant]
     Active Substance: ETANERCEPT
     Indication: IMMUNOSUPPRESSION
     Dosage: 25 MG, QD
     Route: 058
     Dates: start: 20161228, end: 20170111
  2. EXACYL [Concomitant]
     Active Substance: TRANEXAMIC ACID
     Indication: HAEMORRHAGE PROPHYLAXIS
     Dosage: 3 G, QD
     Route: 042
     Dates: start: 20161231, end: 20170112
  3. DEFITELIO [Suspect]
     Active Substance: DEFIBROTIDE SODIUM
     Indication: VENOOCCLUSIVE DISEASE
     Dosage: 14 MG/KG, QD
     Route: 042
     Dates: start: 20161219, end: 20161230

REACTIONS (6)
  - Graft versus host disease in gastrointestinal tract [Fatal]
  - Graft versus host disease in liver [Unknown]
  - Incorrect dose administered [Unknown]
  - Sepsis [Fatal]
  - Circulatory collapse [Fatal]
  - Respiratory failure [Fatal]

NARRATIVE: CASE EVENT DATE: 201612
